FAERS Safety Report 12603091 (Version 1)
Quarter: 2016Q3

REPORT INFORMATION
  Report Type: Spontaneous
  Country: US (occurrence: US)
  Receive Date: 20160728
  Receipt Date: 20160728
  Transmission Date: 20161109
  Serious: Yes (Life-Threatening, Hospitalization, Other)
  Sender: FDA-Public Use
  Company Number: US-PFIZER INC-2016362881

PATIENT
  Age: 75 Year
  Sex: Female
  Weight: 70.31 kg

DRUGS (6)
  1. LYRICA [Suspect]
     Active Substance: PREGABALIN
     Indication: FIBROMYALGIA
     Dosage: 25 MG, 2X/DAY
     Route: 048
     Dates: start: 20160315
  2. PAROXETINE. [Concomitant]
     Active Substance: PAROXETINE
     Indication: HEART RATE INCREASED
     Dosage: 20 MG, UNK
  3. METOPROLOL. [Concomitant]
     Active Substance: METOPROLOL
     Indication: HEART RATE INCREASED
     Dosage: 25 MG, 2X/DAY
  4. OXYGEN. [Concomitant]
     Active Substance: OXYGEN
     Indication: CHRONIC OBSTRUCTIVE PULMONARY DISEASE
     Dosage: 3L WHEN NOT DOING ANYTHING, 4-5L WHEN MOVING AROUND
  5. DULERA [Concomitant]
     Active Substance: FORMOTEROL FUMARATE DIHYDRATE\MOMETASONE FUROATE
     Indication: DYSPNOEA
     Dosage: [FORMOTEROL FUMARATE 200MCG][MOMETASONE FUROATE 5MCG]
  6. SPIRIVA [Concomitant]
     Active Substance: TIOTROPIUM BROMIDE MONOHYDRATE
     Indication: CHRONIC OBSTRUCTIVE PULMONARY DISEASE
     Dosage: UNK

REACTIONS (6)
  - Aspiration [Unknown]
  - Neck pain [Recovering/Resolving]
  - Pneumonia [Recovering/Resolving]
  - Headache [Recovering/Resolving]
  - Thrombosis [Unknown]
  - Vomiting [Unknown]

NARRATIVE: CASE EVENT DATE: 201607
